FAERS Safety Report 4711276-5 (Version None)
Quarter: 2005Q3

REPORT INFORMATION
  Report Type: 
  Country: None (occurrence: None)
  Receive Date: 20050711
  Receipt Date: 20050630
  Transmission Date: 20060218
  Serious: Yes (Hospitalization)
  Sender: FDA-Public Use
  Company Number: 2005073551

PATIENT
  Age: 71 Year
  Sex: Female
  Weight: 81.6475 kg

DRUGS (19)
  1. QUINAPRIL HCL [Suspect]
     Indication: HYPERTENSION
     Dosage: (1 IN 1 D), ORAL
     Route: 048
     Dates: start: 20041221, end: 20050424
  2. METFORMIN (METFORMIN) [Concomitant]
  3. ALEVE [Concomitant]
  4. TAGAMET [Concomitant]
  5. IMODIUM [Concomitant]
  6. AZATHRIOPRINE (AZATHIOPRINE) [Concomitant]
  7. ACETYLSALICYLIC ACID SRT [Concomitant]
  8. GLIPIZIDE [Concomitant]
  9. CALCIUM (CALCIUM) [Concomitant]
  10. LORAZEPAM [Concomitant]
  11. ACTOS [Concomitant]
  12. NOVOLOG [Concomitant]
  13. LANTUS [Concomitant]
  14. IRON (IRON) [Concomitant]
  15. LASIX [Concomitant]
  16. KYTRIL [Concomitant]
  17. MYLANTA (ALUMINIIUM HYDROXIDE, MAGNESIUM HYDROXIDE, SIMETHICONE) [Concomitant]
  18. AMBIEN [Concomitant]
  19. TYLENOL (PARACETAMOL) [Concomitant]

REACTIONS (4)
  - CARDIAC MURMUR [None]
  - CHEST PAIN [None]
  - DRUG INTOLERANCE [None]
  - PANCYTOPENIA [None]
